FAERS Safety Report 5808947-6 (Version None)
Quarter: 2008Q3

REPORT INFORMATION
  Report Type: 
  Country: None (occurrence: None)
  Receive Date: 20080710
  Receipt Date: 20080710
  Transmission Date: 20090109
  Serious: Yes (Disabling, Other)
  Sender: FDA-Public Use
  Company Number: None

PATIENT
  Age: 57 Year
  Sex: Male
  Weight: 122.4712 kg

DRUGS (3)
  1. MOXIFLOXACIN HCL [Suspect]
     Indication: ASTHMA
     Dosage: 1-TAB, 400-MG QD PO, 21-DAYS
     Route: 048
     Dates: start: 20080415, end: 20080504
  2. MOXIFLOXACIN HCL [Suspect]
     Indication: CHRONIC OBSTRUCTIVE PULMONARY DISEASE
     Dosage: 1-TAB, 400-MG QD PO, 21-DAYS
     Route: 048
     Dates: start: 20080415, end: 20080504
  3. MOXIFLOXACIN HCL [Suspect]
     Indication: BRONCHITIS
     Dosage: 1-TAB, 400-MG QD PO, 21-DAYS
     Route: 048
     Dates: start: 20080527, end: 20080616

REACTIONS (7)
  - DIABETES MELLITUS INADEQUATE CONTROL [None]
  - GOUT [None]
  - INSOMNIA [None]
  - MUSCULOSKELETAL PAIN [None]
  - NEUROPATHY PERIPHERAL [None]
  - PAIN IN EXTREMITY [None]
  - TENDON RUPTURE [None]
